FAERS Safety Report 18662095 (Version 2)
Quarter: 2021Q3

REPORT INFORMATION
  Report Type: Report from Study
  Country: PH (occurrence: PH)
  Receive Date: 20201224
  Receipt Date: 20210907
  Transmission Date: 20211014
  Serious: Yes (Other)
  Sender: FDA-Public Use
  Company Number: PH-TAKEDA-2020TUS059063

PATIENT
  Sex: Female

DRUGS (1)
  1. VEDOLIZUMAB [Suspect]
     Active Substance: VEDOLIZUMAB
     Indication: CROHN^S DISEASE
     Dosage: 300 MILLIGRAM
     Route: 042
     Dates: start: 20200921

REACTIONS (2)
  - Abscess intestinal [Unknown]
  - Intestinal mass [Unknown]
